FAERS Safety Report 20124155 (Version 14)
Quarter: 2023Q1

REPORT INFORMATION
  Report Type: Spontaneous
  Country: US (occurrence: US)
  Receive Date: 20211129
  Receipt Date: 20230202
  Transmission Date: 20230418
  Serious: No
  Sender: FDA-Public Use
  Company Number: US-GLAXOSMITHKLINE-US2021AMR240572

PATIENT
  Age: 61 Year
  Sex: Female

DRUGS (3)
  1. ZEJULA [Suspect]
     Active Substance: NIRAPARIB
     Indication: Ovarian cancer
     Dosage: 200 MG, QD
     Route: 048
     Dates: start: 20211117, end: 202201
  2. ZEJULA [Suspect]
     Active Substance: NIRAPARIB
     Dosage: 100 MG, QD
     Dates: start: 202203
  3. ONDANSETRON [Concomitant]
     Active Substance: ONDANSETRON
     Indication: Nausea
     Dosage: UNK

REACTIONS (15)
  - Insomnia [Not Recovered/Not Resolved]
  - Blood pressure increased [Not Recovered/Not Resolved]
  - Arthralgia [Unknown]
  - Back pain [Not Recovered/Not Resolved]
  - Platelet count decreased [Not Recovered/Not Resolved]
  - Biotin deficiency [Recovered/Resolved]
  - Full blood count abnormal [Recovering/Resolving]
  - Dehydration [Recovering/Resolving]
  - Paraesthesia [Not Recovered/Not Resolved]
  - Hot flush [Not Recovered/Not Resolved]
  - Headache [Not Recovered/Not Resolved]
  - Pain in extremity [Not Recovered/Not Resolved]
  - Fatigue [Not Recovered/Not Resolved]
  - Muscle strength abnormal [Not Recovered/Not Resolved]
  - Drug monitoring procedure not performed [Unknown]

NARRATIVE: CASE EVENT DATE: 20211101
